FAERS Safety Report 8625299-7 (Version None)
Quarter: 2012Q3

REPORT INFORMATION
  Report Type: 
  Country: None (occurrence: None)
  Receive Date: 20120827
  Receipt Date: 20120820
  Transmission Date: 20120928
  Serious: Yes (Hospitalization, Other)
  Sender: FDA-Public Use
  Company Number: MX-ABBOTT-12P-107-0960715-00

PATIENT
  Sex: Female

DRUGS (19)
  1. NOOTROPIL [Concomitant]
     Indication: VERTIGO
     Dosage: 1/2 TABS/8 HOURS
     Route: 048
  2. HUMIRA [Suspect]
     Indication: RHEUMATOID ARTHRITIS
     Route: 058
     Dates: start: 20100601
  3. ARLUY [Concomitant]
     Indication: GASTROINTESTINAL INFLAMMATION
     Route: 048
     Dates: start: 20120809
  4. TRIXILEM [Concomitant]
     Indication: RHEUMATOID ARTHRITIS
     Dosage: 4 TABS
     Route: 048
     Dates: start: 20040101
  5. DIOBAN [Concomitant]
     Indication: HYPERTENSION
     Route: 048
     Dates: start: 20110915
  6. CONCORD [Concomitant]
     Indication: HYPERTENSION
     Route: 048
     Dates: start: 20110915
  7. LEVOTHYROXINE SODIUM [Concomitant]
     Indication: AUTOIMMUNE THYROIDITIS
     Dosage: FROM MONDAY TO SATURDAY 1 TABLET
     Route: 048
     Dates: start: 20030101
  8. MALIBAL COMPUESTO [Concomitant]
     Indication: HEADACHE
     Route: 048
  9. LEVOTHYROXINE SODIUM [Concomitant]
     Dosage: ON SUNDAY
     Route: 048
     Dates: start: 20070101
  10. ALZAM [Concomitant]
     Indication: ANXIETY
     Route: 048
     Dates: start: 20090101
  11. NOOTROPIL [Concomitant]
     Indication: HEADACHE
  12. CLONAZEPAM [Concomitant]
     Indication: ANXIETY
     Route: 048
  13. MODIODAM [Concomitant]
     Indication: ANXIETY
     Route: 048
     Dates: start: 20090101
  14. CARTIGEN [Concomitant]
     Indication: RHEUMATOID ARTHRITIS
     Route: 048
  15. CYMBALTA [Concomitant]
     Indication: DEPRESSION
     Route: 048
     Dates: start: 20070101
  16. LYRICA [Concomitant]
     Indication: PAIN
     Route: 048
     Dates: start: 20060101
  17. FOSFOCIL [Concomitant]
     Indication: KIDNEY INFECTION
     Route: 048
     Dates: start: 20120809, end: 20120816
  18. FOLIC ACID [Concomitant]
     Indication: RHEUMATOID ARTHRITIS
     Route: 048
  19. TOTEYE SECUENCIAL [Concomitant]
     Indication: MENOPAUSE
     Route: 048

REACTIONS (6)
  - HYPERTENSION [None]
  - IMPAIRED WORK ABILITY [None]
  - FALL [None]
  - BACK PAIN [None]
  - INTERVERTEBRAL DISC PROTRUSION [None]
  - MUSCULAR WEAKNESS [None]
